FAERS Safety Report 25882141 (Version 1)
Quarter: 2025Q4

REPORT INFORMATION
  Report Type: Spontaneous
  Country: US (occurrence: US)
  Receive Date: 20251006
  Receipt Date: 20251006
  Transmission Date: 20260117
  Serious: No
  Sender: SANOFI AVENTIS
  Company Number: US-SANOFI-02673033

PATIENT
  Age: 64 Year
  Weight: 108 kg

DRUGS (1)
  1. LOVENOX [Suspect]
     Active Substance: ENOXAPARIN SODIUM
     Indication: Thrombosis prophylaxis
     Dosage: UNK UNK, BID (80 MG / 0.8 ML AT ONCE, TOTAL OF 1.6 ML)

REACTIONS (1)
  - Product use issue [Unknown]
